FAERS Safety Report 9084283 (Version 3)
Quarter: 2022Q2

REPORT INFORMATION
  Report Type: Report from Study
  Country: DE (occurrence: DE)
  Receive Date: 20130130
  Receipt Date: 20220625
  Transmission Date: 20220721
  Serious: Yes (Hospitalization)
  Sender: FDA-Public Use
  Company Number: DE-SHIRE-ALL1-2013-00422

PATIENT
  Age: 50 Year
  Sex: Male
  Weight: 52 kg

DRUGS (66)
  1. IDURSULFASE [Suspect]
     Active Substance: IDURSULFASE
     Indication: Mucopolysaccharidosis II
     Dosage: 0.55 MILLIGRAM/KILOGRAM, 1/WEEK
     Route: 042
     Dates: start: 20061128
  2. IDURSULFASE [Suspect]
     Active Substance: IDURSULFASE
     Dosage: 0.55 MILLIGRAM/KILOGRAM
     Route: 042
     Dates: start: 20150706
  3. FUROSEMIDE [Concomitant]
     Active Substance: FUROSEMIDE
     Indication: Cardiovascular disorder
     Dosage: UNK, UNKNOWN
     Route: 065
     Dates: start: 201206
  4. FUROSEMIDE [Concomitant]
     Active Substance: FUROSEMIDE
     Indication: Chronic obstructive pulmonary disease
     Dosage: UNK
     Route: 042
     Dates: start: 201105, end: 20110530
  5. FUROSEMIDE [Concomitant]
     Active Substance: FUROSEMIDE
     Dosage: UNK
     Route: 042
     Dates: start: 20140520, end: 20140520
  6. FUROSEMIDE [Concomitant]
     Active Substance: FUROSEMIDE
     Dosage: UNK
     Route: 048
     Dates: start: 2019
  7. METOPROLOL [Concomitant]
     Active Substance: METOPROLOL
     Indication: Cardiovascular disorder
     Dosage: 25 MG, 2X/DAY:BID
     Route: 048
     Dates: start: 201206
  8. METOPROLOL [Concomitant]
     Active Substance: METOPROLOL
     Dosage: 25 MG/KG, 1X/DAY:QD
     Route: 048
     Dates: start: 20090520, end: 2009
  9. METOPROLOL [Concomitant]
     Active Substance: METOPROLOL
     Dosage: UNK
     Route: 048
     Dates: start: 20090520, end: 2009
  10. METOPROLOL [Concomitant]
     Active Substance: METOPROLOL
     Dosage: UNK
     Route: 048
     Dates: start: 2010, end: 2011
  11. METOPROLOL [Concomitant]
     Active Substance: METOPROLOL
     Dosage: UNK
     Route: 048
     Dates: start: 201206
  12. PHENPROCOUMON [Concomitant]
     Active Substance: PHENPROCOUMON
     Indication: Cardiovascular disorder
     Dosage: 0.5 MG, 1X/DAY:QD
     Route: 048
     Dates: start: 2011
  13. SALMETEROL [Concomitant]
     Active Substance: SALMETEROL
     Indication: Premedication
     Dosage: 1 DOSAGE FORM, BID
     Route: 050
     Dates: start: 2009
  14. SALMETEROL [Concomitant]
     Active Substance: SALMETEROL
     Indication: Respiratory disorder
     Dosage: UNK
     Route: 050
     Dates: start: 2009
  15. FLUTICASONE [Concomitant]
     Active Substance: FLUTICASONE
     Indication: Respiratory disorder
     Dosage: UNK(1 PUFF), 2X/DAY:BID
     Route: 055
     Dates: start: 20081127
  16. FLUTICASONE PROPIONATE\SALMETEROL XINAFOATE [Concomitant]
     Active Substance: FLUTICASONE PROPIONATE\SALMETEROL XINAFOATE
     Indication: Dyspnoea
     Dosage: UNK
     Route: 048
     Dates: start: 1997
  17. DIMETHINDENE [Concomitant]
     Active Substance: DIMETHINDENE
     Indication: Premedication
     Dosage: UNK
     Route: 048
     Dates: start: 20070131, end: 20070131
  18. DIMETHINDENE [Concomitant]
     Active Substance: DIMETHINDENE
     Dosage: UNK
     Route: 048
     Dates: start: 20070207, end: 20070327
  19. DIMETHINDENE [Concomitant]
     Active Substance: DIMETHINDENE
     Dosage: UNK
     Route: 048
     Dates: start: 20070403, end: 20070410
  20. DIMETHINDENE [Concomitant]
     Active Substance: DIMETHINDENE
     Dosage: UNK
     Route: 048
     Dates: start: 20070420, end: 20070508
  21. DIMETHINDENE [Concomitant]
     Active Substance: DIMETHINDENE
     Dosage: UNK
     Route: 048
     Dates: start: 20070521, end: 20070627
  22. DIMETHINDENE [Concomitant]
     Active Substance: DIMETHINDENE
     Dosage: UNK
     Route: 048
     Dates: start: 20070627, end: 20081127
  23. PREDNISOLONE [Concomitant]
     Active Substance: PREDNISOLONE
     Indication: Premedication
     Dosage: UNK
     Route: 042
     Dates: start: 20070207, end: 20070207
  24. PREDNISOLONE [Concomitant]
     Active Substance: PREDNISOLONE
     Indication: Chronic obstructive pulmonary disease
     Dosage: UNK
     Route: 042
     Dates: start: 20070214, end: 20070228
  25. PREDNISOLONE [Concomitant]
     Active Substance: PREDNISOLONE
     Dosage: UNK
     Route: 042
     Dates: start: 20070307, end: 20070307
  26. PREDNISOLONE [Concomitant]
     Active Substance: PREDNISOLONE
     Dosage: UNK
     Route: 042
     Dates: start: 20070313, end: 20070313
  27. PREDNISOLONE [Concomitant]
     Active Substance: PREDNISOLONE
     Dosage: UNK
     Route: 042
     Dates: start: 201105, end: 201105
  28. PREDNISOLONE [Concomitant]
     Active Substance: PREDNISOLONE
     Dosage: UNK
     Route: 042
     Dates: start: 20140520, end: 20140520
  29. CARVEDILOL [Concomitant]
     Active Substance: CARVEDILOL
     Indication: Cardiovascular disorder
     Dosage: UNK
     Route: 048
     Dates: start: 20081127, end: 20090520
  30. DIGITOXIN [Concomitant]
     Active Substance: DIGITOXIN
     Indication: Cardiovascular disorder
     Dosage: UNK
     Route: 048
     Dates: start: 20081127, end: 2009
  31. TERBINAFINE [Concomitant]
     Active Substance: TERBINAFINE
     Indication: Infection
     Dosage: UNK
     Route: 048
     Dates: start: 20090520
  32. RAMIPRIL [Concomitant]
     Active Substance: RAMIPRIL
     Indication: Hypertension
     Dosage: UNK
     Route: 048
     Dates: start: 20100924, end: 2011
  33. POTASSIUM [Concomitant]
     Active Substance: POTASSIUM
     Indication: Supplementation therapy
     Dosage: UNK
     Route: 048
     Dates: start: 20110105
  34. CEFUROXIME [Concomitant]
     Active Substance: CEFUROXIME
     Indication: Antibiotic therapy
     Dosage: UNK
     Route: 065
     Dates: start: 20110125, end: 20110125
  35. HEPARIN [Concomitant]
     Active Substance: HEPARIN SODIUM
     Indication: Anticoagulant therapy
     Dosage: UNK
     Route: 065
     Dates: start: 20110125, end: 20110127
  36. THEOPHYLLINE [Concomitant]
     Active Substance: THEOPHYLLINE
     Indication: Chronic obstructive pulmonary disease
     Dosage: UNK
     Route: 042
     Dates: start: 201105, end: 201105
  37. NOREPINEPHRINE [Concomitant]
     Active Substance: NOREPINEPHRINE
     Indication: Cardiovascular disorder
     Dosage: UNK
     Route: 042
     Dates: start: 201105, end: 20110528
  38. MILRINONE LACTATE [Concomitant]
     Active Substance: MILRINONE LACTATE
     Indication: Cardiovascular disorder
     Dosage: UNK
     Route: 042
     Dates: start: 201105, end: 20110528
  39. ESMOLOL [Concomitant]
     Active Substance: ESMOLOL HYDROCHLORIDE
     Indication: Tachycardia
     Dosage: UNK
     Route: 042
     Dates: start: 201105, end: 20110530
  40. AMIODARONE [Concomitant]
     Active Substance: AMIODARONE
     Indication: Atrial fibrillation
     Dosage: UNK
     Route: 042
     Dates: start: 201105, end: 201107
  41. AMIODARONE [Concomitant]
     Active Substance: AMIODARONE
     Dosage: UNK
     Route: 048
     Dates: start: 201105, end: 201107
  42. CEFOTAXIME SODIUM [Concomitant]
     Active Substance: CEFOTAXIME SODIUM
     Indication: Antibiotic therapy
     Dosage: UNK
     Route: 065
     Dates: start: 201105, end: 201105
  43. DALTEPARIN SODIUM [Concomitant]
     Active Substance: DALTEPARIN SODIUM
     Indication: Anticoagulant therapy
     Dosage: UNK
     Route: 058
     Dates: start: 20110530, end: 20110607
  44. MARCUMAR [Concomitant]
     Active Substance: PHENPROCOUMON
     Indication: Anticoagulant therapy
     Dosage: UNK
     Route: 048
     Dates: start: 20110531
  45. MAGNESIUM [Concomitant]
     Active Substance: MAGNESIUM
     Indication: Mineral supplementation
     Dosage: UNK
     Route: 048
     Dates: start: 20110605
  46. CALCIUM [Concomitant]
     Active Substance: CALCIUM
     Indication: Mineral supplementation
     Dosage: UNK
     Route: 048
     Dates: start: 20110605, end: 201107
  47. CALCIUM [Concomitant]
     Active Substance: CALCIUM
     Dosage: UNK
     Route: 048
     Dates: start: 20210727
  48. AMOXICILLIN [Concomitant]
     Active Substance: AMOXICILLIN
     Indication: Infection
     Dosage: UNK
     Route: 048
     Dates: start: 20130316, end: 20130323
  49. AMOXICILLIN [Concomitant]
     Active Substance: AMOXICILLIN
     Indication: Nasopharyngitis
     Dosage: UNK
     Route: 065
     Dates: start: 201311, end: 201311
  50. AMOXICILLIN [Concomitant]
     Active Substance: AMOXICILLIN
     Indication: Bronchitis
  51. ROXITHROMYCIN [Concomitant]
     Active Substance: ROXITHROMYCIN
     Indication: Bronchitis
     Dosage: UNK
     Route: 065
     Dates: start: 201311, end: 201311
  52. ALBUTEROL [Concomitant]
     Active Substance: ALBUTEROL
     Indication: Dyspnoea
     Dosage: UNK
     Route: 050
     Dates: start: 20140205, end: 2019
  53. CORTISONE [Concomitant]
     Active Substance: CORTISONE
     Indication: Sudden hearing loss
     Dosage: UNK
     Route: 065
     Dates: start: 20140304
  54. SULTAMICILLIN [Concomitant]
     Active Substance: SULTAMICILLIN
     Indication: Chronic obstructive pulmonary disease
     Dosage: UNK
     Dates: start: 20140520, end: 20140530
  55. CLARITHROMYCIN [Concomitant]
     Active Substance: CLARITHROMYCIN
     Indication: Chronic obstructive pulmonary disease
     Dosage: UNK
     Route: 065
     Dates: start: 20140520, end: 20140530
  56. CLARITHROMYCIN [Concomitant]
     Active Substance: CLARITHROMYCIN
     Indication: Pneumonia
     Dosage: UNK
     Route: 065
     Dates: start: 20160828, end: 20160903
  57. CLARITHROMYCIN [Concomitant]
     Active Substance: CLARITHROMYCIN
     Indication: Respiratory tract infection
     Dosage: UNK
     Route: 065
     Dates: start: 20161201
  58. NEBIVOLOL [Concomitant]
     Active Substance: NEBIVOLOL
     Indication: Hypertension
     Dosage: UNK
     Dates: start: 20140530, end: 2015
  59. CEFIXIM [Concomitant]
     Active Substance: CEFIXIME
     Indication: Respiratory tract infection
     Dosage: UNK
     Route: 065
     Dates: start: 201608, end: 201608
  60. SODIUM CHLORIDE [Concomitant]
     Active Substance: SODIUM CHLORIDE
     Indication: Pneumonia
     Dosage: UNK
     Route: 050
     Dates: start: 20160825, end: 20160828
  61. ROCEPHIN [Concomitant]
     Active Substance: CEFTRIAXONE SODIUM
     Indication: Respiratory tract infection
     Dosage: UNK
     Route: 065
     Dates: start: 20161203, end: 20161208
  62. ESCITALOPRAM [Concomitant]
     Active Substance: ESCITALOPRAM OXALATE
     Dosage: UNK
     Route: 065
     Dates: start: 2017
  63. ACETYLCYSTEINE [Concomitant]
     Active Substance: ACETYLCYSTEINE
     Dosage: UNK
     Route: 048
     Dates: start: 2019, end: 2019
  64. CEFTRIAXONE [Concomitant]
     Active Substance: CEFTRIAXONE
     Indication: Pneumonia
     Dosage: UNK
     Route: 042
     Dates: start: 201911, end: 201911
  65. PIPERACILLIN SODIUM\TAZOBACTAM SODIUM [Concomitant]
     Active Substance: PIPERACILLIN SODIUM\TAZOBACTAM SODIUM
     Indication: Pneumonia
     Dosage: UNK
     Route: 042
     Dates: start: 201911, end: 201911
  66. ERYTHROMYCIN [Concomitant]
     Active Substance: ERYTHROMYCIN
     Indication: Pneumonia
     Dosage: UNK
     Route: 065
     Dates: start: 201911, end: 201911

REACTIONS (3)
  - Chills [Not Recovered/Not Resolved]
  - Dyspnoea [Not Recovered/Not Resolved]
  - Pyrexia [Not Recovered/Not Resolved]

NARRATIVE: CASE EVENT DATE: 20121023
